FAERS Safety Report 13195517 (Version 1)
Quarter: 2017Q1

REPORT INFORMATION
  Report Type: Report from Study
  Country: US (occurrence: US)
  Receive Date: 20170208
  Receipt Date: 20170208
  Transmission Date: 20170428
  Serious: No
  Sender: FDA-Public Use
  Company Number: US-009507513-1702USA001915

PATIENT
  Age: 71 Year
  Sex: Male

DRUGS (4)
  1. BELSOMRA [Suspect]
     Active Substance: SUVOREXANT
     Indication: INSOMNIA
     Dosage: 10 MG, ONCE DAILY
     Route: 048
     Dates: start: 201607, end: 2016
  2. BELSOMRA [Suspect]
     Active Substance: SUVOREXANT
     Dosage: 15 MG, ONCE DAILY
     Route: 048
     Dates: start: 2016
  3. BELSOMRA [Suspect]
     Active Substance: SUVOREXANT
     Dosage: 20 MG, ONCE DAILY
     Route: 048
     Dates: start: 201608
  4. BELSOMRA [Suspect]
     Active Substance: SUVOREXANT
     Dosage: 15 MG, ONCE DAILY
     Route: 048
     Dates: start: 2016, end: 201608

REACTIONS (2)
  - Thinking abnormal [Recovered/Resolved with Sequelae]
  - Anxiety [Recovered/Resolved with Sequelae]

NARRATIVE: CASE EVENT DATE: 201608
